FAERS Safety Report 6414731-5 (Version None)
Quarter: 2009Q4

REPORT INFORMATION
  Report Type: 
  Country: None (occurrence: None)
  Receive Date: 20091026
  Receipt Date: 20091026
  Transmission Date: 20100525
  Serious: Yes (Life-Threatening)
  Sender: FDA-Public Use
  Company Number: None

PATIENT

DRUGS (2)
  1. IMMUNE GLOBULIN NOS [Suspect]
     Indication: CHRONIC LYMPHOCYTIC LEUKAEMIA
     Dosage: 20 GM ONCE IV
     Route: 042
     Dates: start: 20090917, end: 20090917
  2. IMMUNE GLOBULIN NOS [Suspect]
     Indication: HYPOGAMMAGLOBULINAEMIA
     Dosage: 20 GM ONCE IV
     Route: 042
     Dates: start: 20090917, end: 20090917

REACTIONS (6)
  - ACUTE RESPIRATORY DISTRESS SYNDROME [None]
  - HYPERTENSION [None]
  - RASH [None]
  - RESPIRATORY DEPRESSION [None]
  - TACHYCARDIA [None]
  - TREMOR [None]
